FAERS Safety Report 13038217 (Version 1)
Quarter: 2016Q4

REPORT INFORMATION
  Report Type: Spontaneous
  Country: US (occurrence: US)
  Receive Date: 20161219
  Receipt Date: 20161219
  Transmission Date: 20170207
  Serious: No
  Sender: FDA-Public Use
  Company Number: US-AUROBINDO-AUR-APL-2016-00940

PATIENT
  Age: 55 Year
  Sex: Male
  Weight: 58.9 kg

DRUGS (1)
  1. FINASTERIDE TABLETS USP 5MG [Suspect]
     Active Substance: FINASTERIDE
     Indication: PROSTATOMEGALY
     Dosage: 5 MG, ONCE A DAY AT NIGHT
     Route: 048

REACTIONS (1)
  - Drug dose omission [Unknown]
